FAERS Safety Report 8608733-8 (Version None)
Quarter: 2012Q3

REPORT INFORMATION
  Report Type: 
  Country: None (occurrence: None)
  Receive Date: 20120809
  Receipt Date: 20120809
  Transmission Date: 20120928
  Serious: Yes (Other)
  Sender: FDA-Public Use
  Company Number: None

PATIENT
  Sex: Male

DRUGS (3)
  1. PEGASYS [Suspect]
     Indication: HEPATITIS C
     Dosage: PEGASYS 180MCG EVERY WEEK SQ
     Route: 058
     Dates: start: 20120801, end: 20120803
  2. RIBAVIRIN [Suspect]
     Indication: HEPATITIS C
     Dosage: RIBAVIRIN 200MG CAPSULE DAILY PO
     Route: 048
     Dates: start: 20120801, end: 20120803
  3. INCIVEK [Concomitant]

REACTIONS (4)
  - ASTHENIA [None]
  - CHILLS [None]
  - PYREXIA [None]
  - GAIT DISTURBANCE [None]
